FAERS Safety Report 24672400 (Version 2)
Quarter: 2025Q1

REPORT INFORMATION
  Report Type: Spontaneous
  Country: US (occurrence: US)
  Receive Date: 20241127
  Receipt Date: 20250224
  Transmission Date: 20250409
  Serious: No
  Sender: SANOFI AVENTIS
  Company Number: US-SA-2024SA343619

PATIENT
  Sex: Male

DRUGS (2)
  1. DUPIXENT [Suspect]
     Active Substance: DUPILUMAB
     Indication: Dermatitis atopic
     Dosage: 300MG,QOW
     Route: 058
     Dates: start: 202408
  2. DUPIXENT [Suspect]
     Active Substance: DUPILUMAB
     Indication: Eczema

REACTIONS (6)
  - Rebound atopic dermatitis [Unknown]
  - Erythema [Unknown]
  - Dry skin [Unknown]
  - Rash pruritic [Unknown]
  - Product dose omission issue [Unknown]
  - Eczema [Unknown]

NARRATIVE: CASE EVENT DATE: 20241001
